FAERS Safety Report 6371073-4 (Version None)
Quarter: 2009Q3

REPORT INFORMATION
  Report Type: 
  Country: None (occurrence: None)
  Receive Date: 20090923
  Receipt Date: 20090911
  Transmission Date: 20100115
  Serious: Yes (Hospitalization)
  Sender: FDA-Public Use
  Company Number: PHHY2008FR22803

PATIENT
  Sex: Female
  Weight: 60 kg

DRUGS (3)
  1. FORADILE [Suspect]
     Indication: ASTHMA
     Dosage: 12 UG, BID
     Route: 065
  2. ORELOX [Concomitant]
     Indication: INFECTION
     Dosage: 200 MG, BID (100 MG 2DF BID)
     Dates: start: 20090422, end: 20090427
  3. PREDNISOLONE [Concomitant]
     Indication: INFECTION
     Dosage: 20 MG, BID
     Route: 065
     Dates: start: 20090422, end: 20090427

REACTIONS (3)
  - DRUG EXPOSURE DURING PREGNANCY [None]
  - NORMAL NEWBORN [None]
  - PHOSPHENES [None]
